FAERS Safety Report 24177939 (Version 2)
Quarter: 2024Q3

REPORT INFORMATION
  Report Type: Spontaneous
  Country: JP (occurrence: JP)
  Receive Date: 20240806
  Receipt Date: 20240827
  Transmission Date: 20241016
  Serious: Yes (Other)
  Sender: MYLAN
  Company Number: JP-VIATRISJAPAN-2024M1069296AA

PATIENT
  Age: 1 Year

DRUGS (4)
  1. REVATIO [Suspect]
     Active Substance: SILDENAFIL CITRATE
     Indication: Product used for unknown indication
     Dosage: 1MG/KG/DAY
     Route: 065
     Dates: start: 20230607, end: 20230609
  2. BOSENTAN [Concomitant]
     Active Substance: BOSENTAN
     Indication: Product used for unknown indication
     Dosage: GRADUAL INCREASE
     Route: 048
  3. BOSENTAN [Concomitant]
     Active Substance: BOSENTAN
     Dosage: 3MG/KG/DAY
     Route: 048
  4. BOSENTAN [Concomitant]
     Active Substance: BOSENTAN
     Dosage: UNK
     Route: 048

REACTIONS (1)
  - Left ventricular failure [Recovered/Resolved]
